FAERS Safety Report 6601508-0 (Version None)
Quarter: 2010Q1

REPORT INFORMATION
  Report Type: 
  Country: None (occurrence: None)
  Receive Date: 20100225
  Receipt Date: 20100217
  Transmission Date: 20100710
  Serious: Yes (Hospitalization, Other)
  Sender: FDA-Public Use
  Company Number: BR-SANOFI-AVENTIS-2010SA009768

PATIENT
  Age: 64 Year
  Sex: Male
  Weight: 82 kg

DRUGS (12)
  1. LANTUS [Suspect]
     Route: 058
     Dates: start: 20100122
  2. LANTUS [Suspect]
     Route: 058
     Dates: start: 20100101, end: 20100211
  3. LANTUS [Suspect]
     Route: 058
     Dates: start: 20100212
  4. AUTOPEN 24 [Suspect]
     Dates: start: 20100122
  5. NOVORAPID [Concomitant]
     Dosage: 4IU BEFORE BREAKFAST; 4 IU BEFORE LUNCH AND 2 IU BEFORE DINNER
     Route: 058
  6. PURAN T4 [Concomitant]
     Indication: THYROID DISORDER
     Dosage: 1 TAB
  7. ATACAND [Concomitant]
     Indication: BLOOD PRESSURE
     Dosage: 1 TAB
     Route: 048
  8. FUROSEMIDE [Concomitant]
     Dosage: 1 TAB
     Route: 048
  9. CLOPIDOGREL BISULFATE [Concomitant]
     Dosage: 1 TAB
     Route: 048
     Dates: start: 20080501
  10. AAS INFANTIL [Concomitant]
     Dosage: 1 TAB
     Route: 048
     Dates: start: 20080501
  11. SIMVASTATIN [Concomitant]
     Dosage: 1 TAB
     Route: 048
     Dates: start: 20080501
  12. CARVEDILOL [Concomitant]
     Dosage: 2 TABS A DAY
     Route: 048

REACTIONS (2)
  - ARTERIAL THROMBOSIS LIMB [None]
  - NECROSIS [None]
